FAERS Safety Report 14391769 (Version 4)
Quarter: 2018Q2

REPORT INFORMATION
  Report Type: Report from Study
  Country: BE (occurrence: BE)
  Receive Date: 20180116
  Receipt Date: 20180426
  Transmission Date: 20180711
  Serious: Yes (Hospitalization)
  Sender: FDA-Public Use
  Company Number: BE-JNJFOC-20180110443

PATIENT
  Age: 48 Year
  Sex: Female
  Weight: 76 kg

DRUGS (2)
  1. USTEKINUMAB [Suspect]
     Active Substance: USTEKINUMAB
     Indication: CROHN^S DISEASE
     Route: 058
     Dates: start: 2018
  2. USTEKINUMAB [Suspect]
     Active Substance: USTEKINUMAB
     Indication: CROHN^S DISEASE
     Route: 058
     Dates: start: 20170606, end: 20171219

REACTIONS (3)
  - Intestinal stenosis [Recovered/Resolved]
  - Intestinal obstruction [Recovered/Resolved]
  - Inflammatory bowel disease [Recovered/Resolved]

NARRATIVE: CASE EVENT DATE: 20180107
